FAERS Safety Report 4366049-2 (Version None)
Quarter: 2004Q2

REPORT INFORMATION
  Report Type: 
  Country: None (occurrence: None)
  Receive Date: 20040524
  Receipt Date: 20040422
  Transmission Date: 20050107
  Serious: Yes (Other)
  Sender: FDA-Public Use
  Company Number: JP-JNJFOC-20040504584

PATIENT
  Age: 55 Year
  Sex: Female

DRUGS (3)
  1. ITRACONAZOLE [Suspect]
     Indication: ONYCHOMYCOSIS
     Dosage: 400 MG, IN 1 DAY, ORAL
     Route: 048
     Dates: start: 20040325, end: 20040331
  2. ITRACONAZOLE [Suspect]
     Indication: TINEA PEDIS
     Dosage: 400 MG, IN 1 DAY, ORAL
     Route: 048
     Dates: start: 20040325, end: 20040331
  3. TERBINAFINE HCL [Concomitant]

REACTIONS (1)
  - ERYTHEMA MULTIFORME [None]
